FAERS Safety Report 6946648-1 (Version None)
Quarter: 2010Q3

REPORT INFORMATION
  Report Type: 
  Country: None (occurrence: None)
  Receive Date: 20100827
  Receipt Date: 20090810
  Transmission Date: 20110219
  Serious: No
  Sender: FDA-Public Use
  Company Number: US-ABBOTT-09P-163-0590708-00

PATIENT
  Sex: Female
  Weight: 110.32 kg

DRUGS (7)
  1. NIASPAN [Suspect]
     Indication: BLOOD CHOLESTEROL INCREASED
     Route: 048
     Dates: start: 20090801
  2. WELCHOL [Concomitant]
     Indication: PRODUCT USED FOR UNKNOWN INDICATION
     Dosage: TAKES 6 TABS OF 625MG DAILY
     Route: 048
  3. ZETIA [Concomitant]
     Indication: PRODUCT USED FOR UNKNOWN INDICATION
     Route: 048
  4. SYNTHROID [Concomitant]
     Indication: THYROIDECTOMY
     Route: 048
  5. TOPROL-XL [Concomitant]
     Indication: TACHYCARDIA
  6. TOPROL-XL [Concomitant]
     Indication: HEART RATE IRREGULAR
  7. ASPIRIN [Concomitant]
     Indication: PRODUCT USED FOR UNKNOWN INDICATION
     Dosage: DAILY TAKEN WITH YOGURT

REACTIONS (5)
  - HEADACHE [None]
  - MIDDLE INSOMNIA [None]
  - MIGRAINE [None]
  - NIGHTMARE [None]
  - SLEEP DISORDER [None]
